FAERS Safety Report 16073756 (Version 1)
Quarter: 2019Q1

REPORT INFORMATION
  Report Type: Spontaneous
  Country: FR (occurrence: FR)
  Receive Date: 20190314
  Receipt Date: 20190314
  Transmission Date: 20190418
  Serious: Yes (Other)
  Sender: FDA-Public Use
  Company Number: FR-MYLANLABS-2019M1023785

PATIENT
  Age: 7 Year
  Sex: Male
  Weight: 16 kg

DRUGS (4)
  1. HALDOL [Suspect]
     Active Substance: HALOPERIDOL
     Indication: DRUG WITHDRAWAL SYNDROME
     Dosage: 0.3 MG AU COUCHER
     Route: 060
     Dates: start: 20180913, end: 20180926
  2. MORPHINE LAVOISIER [Suspect]
     Active Substance: MORPHINE HYDROCHLORIDE
     Indication: ANALGESIC THERAPY
     Dosage: NON CONNUE
     Route: 041
     Dates: start: 20180912, end: 20180926
  3. PIPERACILLIN AND TAZOBACTAM [Suspect]
     Active Substance: PIPERACILLIN SODIUM\TAZOBACTAM SODIUM
     Indication: LUNG INFECTION PSEUDOMONAL
     Dosage: 4.8 GRAM, QD
     Route: 041
     Dates: start: 20180908, end: 20180925
  4. LINEZOLIDE KABI [Concomitant]
     Active Substance: LINEZOLID
     Indication: STAPHYLOCOCCAL INFECTION
     Dosage: 280 MILLIGRAM, BID
     Route: 041
     Dates: start: 20180923, end: 20180925

REACTIONS (2)
  - Eosinophilia [Recovered/Resolved]
  - Toxic skin eruption [Recovered/Resolved]

NARRATIVE: CASE EVENT DATE: 20180924
